FAERS Safety Report 24344802 (Version 1)
Quarter: 2024Q3

REPORT INFORMATION
  Report Type: Spontaneous
  Country: CN (occurrence: CN)
  Receive Date: 20240920
  Receipt Date: 20240920
  Transmission Date: 20241017
  Serious: Yes (Hospitalization)
  Sender: EISAI
  Company Number: CN-Eisai-EC-2024-174369

PATIENT
  Age: 57 Year
  Sex: Male

DRUGS (12)
  1. LENVATINIB [Suspect]
     Active Substance: LENVATINIB
     Indication: Hepatic cancer
     Route: 048
     Dates: start: 202005, end: 202209
  2. LENVATINIB [Suspect]
     Active Substance: LENVATINIB
     Route: 048
     Dates: start: 202301
  3. LENVATINIB [Suspect]
     Active Substance: LENVATINIB
     Route: 048
     Dates: start: 2023
  4. CATEQUENTINIB [Suspect]
     Active Substance: CATEQUENTINIB
     Indication: Hepatic cancer
     Dosage: FREQUENCY UNKNOWN
     Dates: start: 201906, end: 201912
  5. SORAFENIB [Concomitant]
     Active Substance: SORAFENIB
     Indication: Hepatic cancer
     Dates: start: 201809, end: 201901
  6. IPILIMUMAB [Concomitant]
     Active Substance: IPILIMUMAB
     Indication: Hepatic cancer
     Dosage: 3 DOSES
     Dates: start: 201906, end: 201912
  7. REGORAFENIB [Concomitant]
     Active Substance: REGORAFENIB
     Indication: Hepatic cancer
     Dates: start: 202209, end: 2023
  8. LOSARTAN POTASSIUM [Concomitant]
     Active Substance: LOSARTAN POTASSIUM
     Indication: Hepatic cancer
     Dates: start: 202210
  9. ENTECAVIR [Concomitant]
     Active Substance: ENTECAVIR
     Indication: Chronic hepatitis B
     Dosage: DOSE AND FREQUENCY UNKNOWN
     Dates: start: 2018
  10. PROPOFOL [Concomitant]
     Active Substance: PROPOFOL
     Indication: Chronic hepatitis B
     Dosage: DOSE AND FREQUENCY UNKNOWN
     Dates: start: 2023
  11. SACUBITRIL\VALSARTAN [Concomitant]
     Active Substance: SACUBITRIL\VALSARTAN
     Indication: Product used for unknown indication
     Dosage: DOSE AND FREQUENCY UNKNOWN
     Dates: start: 202304
  12. METHYLPREDNISOLONE [Concomitant]
     Active Substance: METHYLPREDNISOLONE
     Indication: Product used for unknown indication
     Dosage: DOSE AND FREQUENCY UNKNOWN
     Dates: start: 202304, end: 2023

REACTIONS (3)
  - Renal failure [Recovering/Resolving]
  - Proteinuria [Recovering/Resolving]
  - Hypertension [Recovered/Resolved]

NARRATIVE: CASE EVENT DATE: 20220901
